FAERS Safety Report 23606544 (Version 1)
Quarter: 2024Q1

REPORT INFORMATION
  Report Type: Spontaneous
  Country: US (occurrence: PH)
  Receive Date: 20240307
  Receipt Date: 20240307
  Transmission Date: 20240410
  Serious: Yes (Hospitalization)
  Sender: FDA-Public Use
  Company Number: US-INCYTE CORPORATION-2024IN002304

PATIENT

DRUGS (1)
  1. JAKAFI [Suspect]
     Active Substance: RUXOLITINIB
     Indication: Myelofibrosis
     Dosage: 1 TABLET (5MG) EVERY OTHER DAY ALTERNATING WITH 2 TABLETS (10MG) EVERY OTHER DAY
     Route: 048

REACTIONS (1)
  - Illness [Unknown]
